FAERS Safety Report 8242163-6 (Version None)
Quarter: 2012Q1

REPORT INFORMATION
  Report Type: 
  Country: None (occurrence: None)
  Receive Date: 20120314
  Receipt Date: 20110504
  Transmission Date: 20120608
  Serious: No
  Sender: FDA-Public Use
  Company Number: PHHY2011US39456

PATIENT
  Age: 30 Year
  Sex: Male

DRUGS (1)
  1. FANAPT [Suspect]
     Indication: SCHIZOPHRENIA
     Dosage: TITRATION PACK UKN, BID, ORAL
     Route: 048

REACTIONS (2)
  - VOMITING [None]
  - NAUSEA [None]
